FAERS Safety Report 21072792 (Version 2)
Quarter: 2022Q3

REPORT INFORMATION
  Report Type: Spontaneous
  Country: JP (occurrence: JP)
  Receive Date: 20220712
  Receipt Date: 20220729
  Transmission Date: 20221027
  Serious: Yes (Other)
  Sender: FDA-Public Use
  Company Number: JP-TEVA-2022-JP-2054515

PATIENT
  Age: 87 Year
  Sex: Male
  Weight: 63.4 kg

DRUGS (7)
  1. ATORVASTATIN [Interacting]
     Active Substance: ATORVASTATIN
     Indication: Cardiovascular event prophylaxis
     Dosage: 5 MILLIGRAM DAILY;
     Route: 065
  2. BICALUTAMIDE [Suspect]
     Active Substance: BICALUTAMIDE
     Indication: Prostate cancer
     Route: 065
  3. ROSUVASTATIN [Interacting]
     Active Substance: ROSUVASTATIN
     Indication: Cardiovascular event prophylaxis
     Dosage: 2.5 MILLIGRAM DAILY;
     Route: 065
  4. LEUPROLIDE ACETATE [Suspect]
     Active Substance: LEUPROLIDE ACETATE
     Indication: Prostate cancer
     Route: 065
  5. APALUTAMIDE [Interacting]
     Active Substance: APALUTAMIDE
     Indication: Prostate cancer
     Dosage: 240 MILLIGRAM DAILY;
     Route: 065
  6. FEBUXOSTAT [Interacting]
     Active Substance: FEBUXOSTAT
     Indication: Cardiovascular event prophylaxis
     Dosage: 40 MILLIGRAM DAILY;
     Route: 065
  7. SILODOSIN [Concomitant]
     Active Substance: SILODOSIN
     Indication: Cardiovascular event prophylaxis
     Dosage: 8 MILLIGRAM DAILY;
     Route: 065

REACTIONS (9)
  - Anti-androgen withdrawal syndrome [Unknown]
  - Drug ineffective [Unknown]
  - Drug interaction [Unknown]
  - Blood cholesterol increased [Recovering/Resolving]
  - Low density lipoprotein increased [Recovering/Resolving]
  - Blood triglycerides increased [Recovering/Resolving]
  - Drug level decreased [Unknown]
  - Blood uric acid decreased [Unknown]
  - Drug level increased [Unknown]
